FAERS Safety Report 20733437 (Version 3)
Quarter: 2022Q2

REPORT INFORMATION
  Report Type: Spontaneous
  Country: US (occurrence: US)
  Receive Date: 20220421
  Receipt Date: 20220604
  Transmission Date: 20220721
  Serious: Yes (Hospitalization)
  Sender: FDA-Public Use
  Company Number: US-SA-SAC20220420000344

PATIENT
  Sex: Female

DRUGS (13)
  1. CEREZYME [Suspect]
     Active Substance: IMIGLUCERASE
     Indication: Gaucher^s disease
     Dosage: 5600 IU, Q4W
     Route: 042
     Dates: start: 20030108
  2. OMEPRAZOLE [Concomitant]
     Active Substance: OMEPRAZOLE
  3. DIPHENHYDRAMINE [Concomitant]
     Active Substance: DIPHENHYDRAMINE
  4. STERILE WATER [Concomitant]
     Active Substance: WATER
  5. EPINEPHRINE [Concomitant]
     Active Substance: EPINEPHRINE
  6. GABAPENTIN [Concomitant]
     Active Substance: GABAPENTIN
  7. VITAMIN A [Concomitant]
     Active Substance: VITAMIN A
  8. ACETAMINOPHEN\HYDROCODONE [Concomitant]
     Active Substance: ACETAMINOPHEN\HYDROCODONE
  9. PREDNISONE [Concomitant]
     Active Substance: PREDNISONE
  10. ALLOPURINOL [Concomitant]
     Active Substance: ALLOPURINOL
  11. FOLIC ACID [Concomitant]
     Active Substance: FOLIC ACID
  12. METOPROLOL TARTRATE [Concomitant]
     Active Substance: METOPROLOL TARTRATE
  13. SODIUM CHLORIDE [Concomitant]
     Active Substance: SODIUM CHLORIDE

REACTIONS (2)
  - Hospitalisation [Unknown]
  - Fatigue [Unknown]
